FAERS Safety Report 8815149 (Version 4)
Quarter: 2014Q2

REPORT INFORMATION
  Report Type: Spontaneous
  Country: US (occurrence: US)
  Receive Date: 20120928
  Receipt Date: 20131018
  Transmission Date: 20141212
  Serious: Yes (Hospitalization, Other)
  Sender: FDA-Public Use
  Company Number: US-PFIZER INC-2012236922

PATIENT
  Age: 69 Year
  Sex: Female
  Weight: 68.03 kg

DRUGS (9)
  1. GELFOAM [Suspect]
     Indication: SPINAL LAMINECTOMY
     Dosage: UNK
     Dates: start: 20120323, end: 20120428
  2. VANCOMYCIN [Suspect]
     Indication: BACILLUS INFECTION
     Dosage: PRESCRIBED FOR 6 WEEKS, BUT THE PATIENT TOOK FOR 2 WEEKS
     Route: 042
     Dates: start: 2012, end: 2012
  3. VANCOMYCIN [Suspect]
     Indication: STAPHYLOCOCCAL INFECTION
     Dosage: 2.5MG DAILY FIRST WEEK, 2MG DAILY THE NEXT WEEK, THEN 1.75MG DAILY AND 1.5MG DAILY
     Dates: start: 201207, end: 201209
  4. PREVACID [Concomitant]
     Indication: GASTROOESOPHAGEAL REFLUX DISEASE
     Dosage: 30 MG, 2X/DAY
  5. PREMARIN [Concomitant]
     Indication: HYSTERECTOMY
     Dosage: 0.35 MG, DAILY
  6. THYROXINE [Concomitant]
     Indication: THYROID DISORDER
     Dosage: 0.88 MG, DAILY
  7. MULTIVITAMINS [Concomitant]
     Dosage: UNK
  8. CALCIUM [Concomitant]
     Dosage: UNK
  9. THROMBIN [Concomitant]
     Indication: SPINAL LAMINECTOMY

REACTIONS (11)
  - Device misuse [Unknown]
  - Bacillus infection [Unknown]
  - Staphylococcal infection [Unknown]
  - Extradural abscess [Recovered/Resolved]
  - Post procedural complication [Unknown]
  - Abasia [Unknown]
  - Renal impairment [Unknown]
  - Bone disorder [Unknown]
  - Pain in extremity [Not Recovered/Not Resolved]
  - Back pain [Not Recovered/Not Resolved]
  - Muscle spasms [Not Recovered/Not Resolved]
